FAERS Safety Report 13501766 (Version 1)
Quarter: 2017Q2

REPORT INFORMATION
  Report Type: Report from Study
  Country: US (occurrence: US)
  Receive Date: 20170502
  Receipt Date: 20170502
  Transmission Date: 20170830
  Serious: Yes (Hospitalization)
  Sender: FDA-Public Use
  Company Number: US-BIOGEN-2014BI011177

PATIENT
  Age: 49 Year
  Sex: Female

DRUGS (1)
  1. TYSABRI [Suspect]
     Active Substance: NATALIZUMAB
     Indication: MULTIPLE SCLEROSIS
     Dosage: INFIUSED OVER 1 HOUR
     Route: 042
     Dates: start: 20100929

REACTIONS (1)
  - Brain neoplasm benign [Recovered/Resolved]

NARRATIVE: CASE EVENT DATE: 20121201
